FAERS Safety Report 15093948 (Version 1)
Quarter: 2018Q2

REPORT INFORMATION
  Report Type: Report from Study
  Country: US (occurrence: US)
  Receive Date: 20180629
  Receipt Date: 20180629
  Transmission Date: 20180711
  Serious: Yes (Other)
  Sender: FDA-Public Use
  Company Number: US-JAZZ-2017-US-001933

PATIENT
  Sex: Female

DRUGS (20)
  1. SULFACETAMIDE SODIUM. [Concomitant]
     Active Substance: SULFACETAMIDE SODIUM
  2. PREVACID [Concomitant]
     Active Substance: LANSOPRAZOLE
  3. CYMBALTA [Concomitant]
     Active Substance: DULOXETINE HYDROCHLORIDE
  4. FINACEA PLUS [Concomitant]
  5. XYREM [Suspect]
     Active Substance: SODIUM OXYBATE
     Indication: NARCOLEPSY
     Dosage: 2.25 G, BID
     Route: 048
     Dates: start: 2013, end: 201311
  6. XYREM [Suspect]
     Active Substance: SODIUM OXYBATE
     Dosage: 4.5 G, BID
     Route: 048
     Dates: start: 201311
  7. MOBIC [Concomitant]
     Active Substance: MELOXICAM
  8. ZYRTEC [Concomitant]
     Active Substance: CETIRIZINE HYDROCHLORIDE
  9. MINOCYCLINE [Concomitant]
     Active Substance: MINOCYCLINE\MINOCYCLINE HYDROCHLORIDE
  10. ABILIFY [Concomitant]
     Active Substance: ARIPIPRAZOLE
  11. LAMICTAL [Concomitant]
     Active Substance: LAMOTRIGINE
  12. METROGEL [Concomitant]
     Active Substance: METRONIDAZOLE
  13. XYREM [Suspect]
     Active Substance: SODIUM OXYBATE
     Dosage: DOSE ADJUSTMENT
     Route: 048
     Dates: start: 201311, end: 201311
  14. METHOCARBAMOL. [Concomitant]
     Active Substance: METHOCARBAMOL
  15. CONCERTA [Concomitant]
     Active Substance: METHYLPHENIDATE HYDROCHLORIDE
  16. NUVIGIL [Concomitant]
     Active Substance: ARMODAFINIL
  17. METHYLPREDNISOLONE. [Concomitant]
     Active Substance: METHYLPREDNISOLONE
  18. BUSPIRONE HCL [Concomitant]
     Active Substance: BUSPIRONE HYDROCHLORIDE
  19. TEMAZEPAM. [Concomitant]
     Active Substance: TEMAZEPAM
  20. TRIAMTERENE AND HYDROCHLOROTHIAZID [Concomitant]
     Active Substance: HYDROCHLOROTHIAZIDE\TRIAMTERENE

REACTIONS (3)
  - Rash [Unknown]
  - Hypertension [Unknown]
  - Radiculopathy [Recovered/Resolved]
